FAERS Safety Report 23649931 (Version 1)
Quarter: 2024Q1

REPORT INFORMATION
  Report Type: Spontaneous
  Country: US (occurrence: None)
  Receive Date: 20240319
  Receipt Date: 20240319
  Transmission Date: 20240410
  Serious: No
  Sender: FDA-Public Use
  Company Number: US-ROCHE-3374869

PATIENT
  Age: 64 Year
  Sex: Male

DRUGS (2)
  1. ERIVEDGE [Suspect]
     Active Substance: VISMODEGIB
     Indication: Basal cell naevus syndrome
     Dosage: ONE MONTH OF EVERY QUARTER; PULSING ON ONE MONTH, OFF FOR 2 MONTH, THEN ON ONE MONTH, OFF 2
     Route: 065
     Dates: end: 2020
  2. ERIVEDGE [Suspect]
     Active Substance: VISMODEGIB
     Dosage: INCREASED TO EVERY OTHER MONTH
     Route: 065
     Dates: start: 2020

REACTIONS (2)
  - Off label use [Unknown]
  - No adverse event [Unknown]

NARRATIVE: CASE EVENT DATE: 20200101
